FAERS Safety Report 11994732 (Version 1)
Quarter: 2016Q1

REPORT INFORMATION
  Report Type: Spontaneous
  Country: US (occurrence: US)
  Receive Date: 20160203
  Receipt Date: 20160203
  Transmission Date: 20160526
  Serious: Yes (Other)
  Sender: FDA-Public Use
  Company Number: US-UCBSA-2015036904

PATIENT

DRUGS (3)
  1. KEPPRA [Suspect]
     Active Substance: LEVETIRACETAM
     Indication: PRODUCT USED FOR UNKNOWN INDICATION
     Dosage: 1000 MIL A DAY
  2. KEPPRA [Suspect]
     Active Substance: LEVETIRACETAM
     Dosage: 2500 MIL A DAY
  3. KEPPRA [Suspect]
     Active Substance: LEVETIRACETAM
     Dosage: 2000 MIL A DAY

REACTIONS (2)
  - Seizure [Unknown]
  - Anger [Unknown]
